FAERS Safety Report 5904658-7 (Version None)
Quarter: 2008Q4

REPORT INFORMATION
  Report Type: 
  Country: None (occurrence: None)
  Receive Date: 20081001
  Receipt Date: 20080926
  Transmission Date: 20090506
  Serious: Yes (Death, Hospitalization, Other)
  Sender: FDA-Public Use
  Company Number: BR-ABBOTT-08P-020-0447464-00

PATIENT
  Sex: Female

DRUGS (3)
  1. HUMIRA [Suspect]
     Indication: RHEUMATOID ARTHRITIS
     Route: 058
     Dates: start: 20070801, end: 20080412
  2. SPIRONOLACTONE [Concomitant]
     Indication: VARICOSE VEIN
     Route: 048
  3. UNKNOWN MAGISTRAL FORMULA WITH 4 COMPOUNDS [Concomitant]
     Indication: RHEUMATOID ARTHRITIS

REACTIONS (9)
  - BLOOD CREATININE INCREASED [None]
  - BLOOD UREA INCREASED [None]
  - DYSPNOEA [None]
  - INFECTION [None]
  - LUNG DISORDER [None]
  - MALNUTRITION [None]
  - NAUSEA [None]
  - PULMONARY TUBERCULOSIS [None]
  - WEIGHT DECREASED [None]
